FAERS Safety Report 21715414 (Version 1)
Quarter: 2022Q4

REPORT INFORMATION
  Report Type: Spontaneous
  Country: US (occurrence: US)
  Receive Date: 20221212
  Receipt Date: 20221212
  Transmission Date: 20230113
  Serious: No
  Sender: FDA-Public Use
  Company Number: US-ALLERGAN-2236287US

PATIENT
  Age: 70 Year
  Sex: Female
  Weight: 88.45 kg

DRUGS (4)
  1. NEBIVOLOL [Suspect]
     Active Substance: NEBIVOLOL
     Indication: Syncope
     Dosage: 5 MG, QD
     Route: 048
     Dates: start: 202209, end: 202209
  2. NEBIVOLOL [Suspect]
     Active Substance: NEBIVOLOL
     Indication: Hypertension
  3. HYDROCHLOROTHIAZIDE [Concomitant]
     Active Substance: HYDROCHLOROTHIAZIDE
     Indication: Loss of consciousness
     Dosage: UNK, BID
  4. FLUOXETINE [Concomitant]
     Active Substance: FLUOXETINE HYDROCHLORIDE

REACTIONS (8)
  - Blood pressure systolic increased [Recovered/Resolved]
  - Blood pressure diastolic decreased [Recovered/Resolved]
  - Heart rate increased [Recovered/Resolved]
  - Off label use [Unknown]
  - Insomnia [Recovered/Resolved]
  - Dizziness [Recovered/Resolved]
  - Drug ineffective [Unknown]
  - Product substitution issue [Unknown]

NARRATIVE: CASE EVENT DATE: 20220901
